FAERS Safety Report 24217067 (Version 1)
Quarter: 2024Q3

REPORT INFORMATION
  Report Type: Spontaneous
  Country: US (occurrence: None)
  Receive Date: 20240815
  Receipt Date: 20240815
  Transmission Date: 20241016
  Serious: Yes (unspecified)
  Sender: Public
  Company Number: None

PATIENT
  Age: 13 Year
  Sex: Male

DRUGS (1)
  1. OMNITROPE [Suspect]
     Active Substance: SOMATROPIN
     Indication: Hypopituitarism
     Dosage: FREQUENCY : DAILY;?

REACTIONS (2)
  - COVID-19 [None]
  - Pharyngitis streptococcal [None]

NARRATIVE: CASE EVENT DATE: 20240814
